FAERS Safety Report 13353539 (Version 1)
Quarter: 2017Q1

REPORT INFORMATION
  Report Type: Report from Study
  Country: IT (occurrence: IT)
  Receive Date: 20170321
  Receipt Date: 20170321
  Transmission Date: 20170429
  Serious: Yes (Hospitalization)
  Sender: FDA-Public Use
  Company Number: IT-ROCHE-1413899

PATIENT
  Age: 70 Year
  Sex: Female
  Weight: 93 kg

DRUGS (10)
  1. VEMURAFENIB [Suspect]
     Active Substance: VEMURAFENIB
     Indication: MALIGNANT MELANOMA
     Dosage: TWICE DAILY ON DAYS 1-28 OF EACH 28 DAY CYCLE.
     Route: 048
     Dates: start: 20130621, end: 20140515
  2. VALSARTAN. [Concomitant]
     Active Substance: VALSARTAN
     Indication: HYPERTENSION
     Route: 048
     Dates: start: 2010
  3. FUROSEMIDE. [Concomitant]
     Active Substance: FUROSEMIDE
     Indication: HYPERTENSION
     Route: 048
     Dates: start: 2004
  4. IDROCORTISONE [Concomitant]
     Route: 061
     Dates: start: 20131206
  5. IBUPROFENE [Concomitant]
     Active Substance: IBUPROFEN
     Indication: MYALGIA
     Route: 048
     Dates: start: 20140329, end: 20140501
  6. KETOPROFENE [Concomitant]
     Active Substance: KETOPROFEN
     Indication: ASTHENIA
     Route: 048
     Dates: start: 20140429, end: 20140429
  7. AMLODIPINA [Concomitant]
     Active Substance: AMLODIPINE BESYLATE
     Indication: HYPERTENSION
     Route: 048
     Dates: start: 2006
  8. BETAMETHASONE. [Concomitant]
     Active Substance: BETAMETHASONE
     Route: 061
     Dates: start: 20130103
  9. PHYSIOLOGIC SOLUTION [Concomitant]
     Indication: HYPOTENSION
     Route: 042
     Dates: start: 20140429, end: 20140429
  10. COBIMETINIB [Suspect]
     Active Substance: COBIMETINIB
     Indication: MALIGNANT MELANOMA
     Dosage: QD
     Route: 048
     Dates: start: 20130621, end: 20140515

REACTIONS (1)
  - Musculoskeletal pain [Recovering/Resolving]

NARRATIVE: CASE EVENT DATE: 20140516
